FAERS Safety Report 18629929 (Version 3)
Quarter: 2021Q1

REPORT INFORMATION
  Report Type: Spontaneous
  Country: US (occurrence: US)
  Receive Date: 20201217
  Receipt Date: 20210121
  Transmission Date: 20210419
  Serious: Yes (Other)
  Sender: FDA-Public Use
  Company Number: US-BAYER-2020-271451

PATIENT
  Age: 2 Year
  Sex: Male

DRUGS (2)
  1. KOGENATE FS [Suspect]
     Active Substance: ANTIHEMOPHILIC FACTOR, HUMAN RECOMBINANT
     Dosage: GIVEN A DOSE OF KOGENATE AS A PRECAUTION
  2. KOGENATE FS [Suspect]
     Active Substance: ANTIHEMOPHILIC FACTOR, HUMAN RECOMBINANT
     Dosage: 598 U
     Route: 042

REACTIONS (2)
  - Head injury [Recovered/Resolved]
  - Ear infection [None]

NARRATIVE: CASE EVENT DATE: 20201207
